FAERS Safety Report 5482574-5 (Version None)
Quarter: 2007Q4

REPORT INFORMATION
  Report Type: 
  Country: None (occurrence: None)
  Receive Date: 20071011
  Receipt Date: 20070716
  Transmission Date: 20080405
  Serious: No
  Sender: FDA-Public Use
  Company Number: A0664310A

PATIENT
  Age: 57 Year
  Sex: Female

DRUGS (9)
  1. TYKERB [Suspect]
     Indication: BREAST CANCER
     Dosage: 1250MG PER DAY
     Route: 048
     Dates: start: 20070701, end: 20070706
  2. XELODA [Concomitant]
  3. VERAPAMIL [Concomitant]
  4. LANOXIN [Concomitant]
  5. PROTONIX [Concomitant]
  6. SINGULAIR [Concomitant]
  7. VYTORIN [Concomitant]
  8. PAXIL [Concomitant]
  9. SYNTHROID [Concomitant]

REACTIONS (3)
  - DIARRHOEA [None]
  - FATIGUE [None]
  - NAUSEA [None]
